FAERS Safety Report 9218069 (Version 2)
Quarter: 2013Q2

REPORT INFORMATION
  Report Type: Spontaneous
  Country: US (occurrence: US)
  Receive Date: 20130408
  Receipt Date: 20130502
  Transmission Date: 20140414
  Serious: Yes (Other)
  Sender: FDA-Public Use
  Company Number: US-PFIZER INC-2013109982

PATIENT
  Age: 54 Year
  Sex: Female
  Weight: 118 kg

DRUGS (4)
  1. NEURONTIN [Suspect]
     Indication: FIBROMYALGIA
     Dosage: UNK, EVERY 6 HOURS
  2. PROTONIX [Suspect]
     Indication: GASTRIC DISORDER
     Dosage: 40 MG/DAY
  3. LORTAB [Suspect]
     Indication: PAIN
     Dosage: UNK, EVERY 6 HOURS
  4. SULFAZINE [Concomitant]
     Indication: PSORIATIC ARTHROPATHY
     Dosage: 500 MG, 4X/DAY

REACTIONS (9)
  - Cervical spinal stenosis [Unknown]
  - Renal failure chronic [Unknown]
  - Skeletal injury [Unknown]
  - Accident [Unknown]
  - Pain [Unknown]
  - Headache [Unknown]
  - Abdominal discomfort [Unknown]
  - Malaise [Unknown]
  - Drug ineffective [Unknown]
